FAERS Safety Report 14755474 (Version 2)
Quarter: 2018Q2

REPORT INFORMATION
  Report Type: Spontaneous
  Country: US (occurrence: US)
  Receive Date: 20180413
  Receipt Date: 20180629
  Transmission Date: 20180711
  Serious: No
  Sender: FDA-Public Use
  Company Number: US-JNJFOC-20180405471

PATIENT
  Age: 66 Year
  Sex: Female
  Weight: 63.05 kg

DRUGS (23)
  1. SIMPONI ARIA [Suspect]
     Active Substance: GOLIMUMAB
     Indication: RHEUMATOID ARTHRITIS
     Dosage: 8 WEEKS
     Route: 042
     Dates: start: 20170514, end: 20180404
  2. RECLAST [Concomitant]
     Active Substance: ZOLEDRONIC ACID
     Indication: OSTEOPOROSIS
     Dosage: INFUSION
     Route: 042
     Dates: start: 20180514
  3. MAGNESIUM [Concomitant]
     Active Substance: MAGNESIUM
     Indication: MUSCLE SPASMS
     Route: 065
     Dates: start: 20180514
  4. OXYBUTYNIN. [Concomitant]
     Active Substance: OXYBUTYNIN CHLORIDE
     Route: 065
     Dates: start: 1983, end: 20180404
  5. IBUPROFEN. [Concomitant]
     Active Substance: IBUPROFEN
     Indication: ARTHRALGIA
     Route: 065
     Dates: start: 20180514
  6. MAGNESIUM [Concomitant]
     Active Substance: MAGNESIUM
     Indication: MUSCLE SPASMS
     Dosage: MAGNESIUM OIL SPRAY
     Route: 065
     Dates: start: 20180514
  7. POTASSIUM [Concomitant]
     Active Substance: POTASSIUM
     Indication: MUSCLE SPASMS
     Route: 065
     Dates: start: 1983, end: 20180404
  8. S-ADENOSYL-L-METHIONINE [Concomitant]
     Active Substance: ADEMETIONINE
     Indication: AFFECTIVE DISORDER
     Route: 065
     Dates: start: 20180514
  9. CRANBERRY. [Concomitant]
     Active Substance: CRANBERRY
     Route: 065
     Dates: start: 1983, end: 20180404
  10. TESTOSTERONE. [Concomitant]
     Active Substance: TESTOSTERONE
     Route: 065
     Dates: start: 1983, end: 20180410
  11. COENZYME Q10 [Concomitant]
     Active Substance: UBIDECARENONE
     Route: 065
     Dates: start: 1983, end: 20180404
  12. AMOXICILLIN. [Concomitant]
     Active Substance: AMOXICILLIN
     Indication: ENDODONTIC PROCEDURE
     Dosage: INFUSION
     Route: 048
     Dates: start: 20171105
  13. VITAMIN D3 [Concomitant]
     Active Substance: CHOLECALCIFEROL
     Indication: IMMUNE SYSTEM DISORDER
     Route: 065
     Dates: start: 20180514
  14. BIOTIN [Concomitant]
     Active Substance: BIOTIN
     Indication: ALOPECIA
     Route: 065
     Dates: start: 20180514
  15. SELENIUM [Concomitant]
     Active Substance: SELENIUM
     Indication: IMMUNE SYSTEM DISORDER
     Route: 065
     Dates: start: 20180514
  16. IBUPROFEN PM [Concomitant]
     Active Substance: DIPHENHYDRAMINE CITRATE\IBUPROFEN
     Indication: PAIN
     Route: 065
  17. TURMERIC [Concomitant]
     Active Substance: HERBALS\TURMERIC
     Indication: INFLAMMATION
     Route: 065
     Dates: start: 20180514
  18. ESTRADIOL. [Concomitant]
     Active Substance: ESTRADIOL
     Indication: HORMONE REPLACEMENT THERAPY
     Route: 065
     Dates: start: 20180514
  19. CINNAMON. [Concomitant]
     Active Substance: CINNAMON
     Route: 065
     Dates: start: 1983, end: 20180404
  20. S-ADENOSYL-L-METHIONINE [Concomitant]
     Active Substance: ADEMETIONINE
     Indication: ARTHROPATHY
     Route: 065
     Dates: start: 20180514
  21. DHEA [Concomitant]
     Active Substance: PRASTERONE
     Route: 065
     Dates: start: 20180514
  22. GARLIC. [Concomitant]
     Active Substance: GARLIC
     Route: 065
     Dates: start: 1983, end: 20180404
  23. CLINDAMYCIN. [Concomitant]
     Active Substance: CLINDAMYCIN
     Route: 065
     Dates: start: 1983, end: 20180404

REACTIONS (19)
  - Hypersensitivity [Unknown]
  - Eye disorder [Not Recovered/Not Resolved]
  - Hot flush [Unknown]
  - Gastrooesophageal reflux disease [Unknown]
  - Weight increased [Unknown]
  - Endodontic procedure [Unknown]
  - Sleep apnoea syndrome [Unknown]
  - Thyroid disorder [Unknown]
  - Trigger finger [Unknown]
  - Osteoarthritis [Unknown]
  - Cystitis [Recovering/Resolving]
  - Vulvovaginal dryness [Unknown]
  - Gait disturbance [Unknown]
  - Visual impairment [Recovering/Resolving]
  - Hiatus hernia [Unknown]
  - Hypoaesthesia [Unknown]
  - Rash [Not Recovered/Not Resolved]
  - Acne [Not Recovered/Not Resolved]
  - Balance disorder [Unknown]

NARRATIVE: CASE EVENT DATE: 201711
